FAERS Safety Report 6571745-2 (Version None)
Quarter: 2010Q1

REPORT INFORMATION
  Report Type: 
  Country: None (occurrence: None)
  Receive Date: 20100205
  Receipt Date: 20100203
  Transmission Date: 20100710
  Serious: Yes (Hospitalization)
  Sender: FDA-Public Use
  Company Number: FR-WYE-G05492810

PATIENT
  Sex: Female

DRUGS (1)
  1. ADVIL LIQUI-GELS [Suspect]
     Indication: HYPERTHERMIA
     Dosage: 3 TO 4 DOSE-FORM TOTAL DAILY
     Route: 048
     Dates: start: 20100110, end: 20100112

REACTIONS (6)
  - AGRANULOCYTOSIS [None]
  - DRUG INEFFECTIVE [None]
  - HAEMOGLOBIN DECREASED [None]
  - INFLAMMATION [None]
  - LOBAR PNEUMONIA [None]
  - TYMPANIC MEMBRANE HYPERAEMIA [None]
